FAERS Safety Report 6430908-7 (Version None)
Quarter: 2009Q4

REPORT INFORMATION
  Report Type: 
  Country: None (occurrence: None)
  Receive Date: 20091106
  Receipt Date: 20091028
  Transmission Date: 20100525
  Serious: Yes (Hospitalization)
  Sender: FDA-Public Use
  Company Number: JP-MERCK-0911USA00157

PATIENT
  Age: 81 Year
  Sex: Female
  Weight: 41 kg

DRUGS (1)
  1. DECADRON [Suspect]
     Route: 048

REACTIONS (5)
  - AGITATION [None]
  - DELIRIUM [None]
  - EPISTAXIS [None]
  - HERPES ZOSTER [None]
  - SKIN DISORDER [None]
